FAERS Safety Report 22152663 (Version 1)
Quarter: 2023Q1

REPORT INFORMATION
  Report Type: Spontaneous
  Country: CZ (occurrence: CZ)
  Receive Date: 20230329
  Receipt Date: 20230329
  Transmission Date: 20230418
  Serious: Yes (Hospitalization, Other)
  Sender: FDA-Public Use
  Company Number: CZ-ELI_LILLY_AND_COMPANY-CZ202303011602

PATIENT
  Age: 42 Year
  Sex: Male

DRUGS (1)
  1. OLANZAPINE [Suspect]
     Active Substance: OLANZAPINE
     Indication: Schizophrenia
     Dosage: UNK, UNKNOWN
     Route: 065

REACTIONS (5)
  - Schizophrenia [Unknown]
  - Psychotic symptom [Recovering/Resolving]
  - Hallucination, auditory [Unknown]
  - Delusion [Unknown]
  - Drug level increased [Recovering/Resolving]
